FAERS Safety Report 10637545 (Version 3)
Quarter: 2014Q4

REPORT INFORMATION
  Report Type: Spontaneous
  Country: US (occurrence: US)
  Receive Date: 20141208
  Receipt Date: 20141219
  Transmission Date: 20150529
  Serious: Yes (Life-Threatening, Other)
  Sender: FDA-Public Use
  Company Number: CHPA2014US016053

PATIENT
  Age: 63 Year
  Sex: Female

DRUGS (5)
  1. CONTROL STEP 1 21MG [Suspect]
     Active Substance: NICOTINE
     Indication: SMOKING CESSATION THERAPY
     Dosage: 1 DF, QD
     Route: 062
     Dates: start: 20141111, end: 20141124
  2. PHENYLALANINE [Concomitant]
     Active Substance: PHENYLALANINE
     Indication: DEPRESSION
     Dosage: UNK, PRN
     Route: 065
  3. HABITROL [Suspect]
     Active Substance: NICOTINE
     Indication: SMOKING CESSATION THERAPY
     Dosage: 1 DF, QD
     Route: 062
     Dates: start: 20141125, end: 20141129
  4. NICOTINE. [Suspect]
     Active Substance: NICOTINE
     Indication: PRODUCT USED FOR UNKNOWN INDICATION
     Dosage: UNK
     Route: 065
     Dates: start: 2014
  5. TRAMADOL [Concomitant]
     Active Substance: TRAMADOL
     Indication: BACK PAIN
     Dosage: 1 OR 2, PRN
     Route: 065

REACTIONS (16)
  - Trichorrhexis [Unknown]
  - Drug effect decreased [Unknown]
  - Blood pressure increased [Recovered/Resolved]
  - Vomiting [Recovered/Resolved]
  - Application site erythema [Recovering/Resolving]
  - Application site pruritus [Recovering/Resolving]
  - Sensitivity of teeth [Unknown]
  - Back pain [Not Recovered/Not Resolved]
  - Feeling abnormal [Not Recovered/Not Resolved]
  - Application site urticaria [Recovering/Resolving]
  - Depression [Not Recovered/Not Resolved]
  - Wrong technique in drug usage process [Unknown]
  - Confusional state [Recovered/Resolved]
  - Peripheral swelling [Recovering/Resolving]
  - Application site dryness [Unknown]
  - Therapeutic response unexpected [Unknown]

NARRATIVE: CASE EVENT DATE: 2014
